FAERS Safety Report 9298268 (Version 2)
Quarter: 2013Q2

REPORT INFORMATION
  Report Type: Spontaneous
  Country: US (occurrence: US)
  Receive Date: 20130520
  Receipt Date: 20130627
  Transmission Date: 20140414
  Serious: No
  Sender: FDA-Public Use
  Company Number: US-009507513-1305USA003719

PATIENT
  Age: 62 Year
  Sex: Female
  Weight: 81.63 kg

DRUGS (4)
  1. MIRALAX [Suspect]
     Indication: COLONOSCOPY
     Dosage: UNK, UNKNOWN
     Route: 048
     Dates: start: 20130325
  2. ALLEGRA [Concomitant]
     Indication: HYPERSENSITIVITY
  3. ACTIVELLA [Concomitant]
     Indication: MENOPAUSE
  4. EFFEXOR XR [Concomitant]
     Indication: DEPRESSION

REACTIONS (4)
  - Blood glucose increased [Unknown]
  - Blood glucose abnormal [Unknown]
  - Malaise [Unknown]
  - Off label use [Unknown]
